FAERS Safety Report 7275581-3 (Version None)
Quarter: 2011Q1

REPORT INFORMATION
  Report Type: 
  Country: None (occurrence: None)
  Receive Date: 20110131
  Receipt Date: 20110127
  Transmission Date: 20110831
  Serious: Yes (Hospitalization)
  Sender: FDA-Public Use
  Company Number: 808478

PATIENT
  Age: 45 Year
  Sex: Male

DRUGS (9)
  1. (LOSEC  /00661201/) [Concomitant]
  2. ETOPOSIDE [Suspect]
     Indication: MALIGNANT LYMPHOID NEOPLASM
     Dosage: 110 MG MILLIGRAM(S)
  3. NAPROXEN [Concomitant]
  4. CYTARABINE [Suspect]
     Indication: MALIGNANT LYMPHOID NEOPLASM
     Dosage: 3.7 G GRAM(S)
     Dates: start: 20040305
  5. (PEGFILGRASTIM) [Suspect]
     Indication: PRODUCT USED FOR UNKNOWN INDICATION
     Dosage: 6 MG MILLIGRAM(S)
     Dates: start: 20040310
  6. VINORELBINE TARTRATE [Suspect]
     Indication: MALIGNANT LYMPHOID NEOPLASM
     Dosage: 46 MG MILLIGRAM(S)
     Dates: start: 20040303
  7. IFOSFAMIDE [Suspect]
     Indication: MALIGNANT LYMPHOID NEOPLASM
     Dosage: 5.5 G GRAM(S)
  8. GEMZAR [Suspect]
     Indication: MALIGNANT LYMPHOID NEOPLASM
     Dosage: 1.8 G GRAM(S) INTRAVENOUS (NOT OTHERWISE SPECIFIED)
     Route: 042
     Dates: start: 20040303
  9. (PREDNISOLONE) [Concomitant]

REACTIONS (5)
  - SYNCOPE [None]
  - EPISTAXIS [None]
  - FEBRILE NEUTROPENIA [None]
  - CELLULITIS [None]
  - SEPSIS [None]
